FAERS Safety Report 15315760 (Version 1)
Quarter: 2018Q3

REPORT INFORMATION
  Report Type: Spontaneous
  Country: US (occurrence: US)
  Receive Date: 20180815
  Receipt Date: 20180815
  Transmission Date: 20181010
  Serious: No
  Sender: FDA-Public Use
  Company Number: None

PATIENT
  Age: 27 Year
  Sex: Female
  Weight: 94.35 kg

DRUGS (4)
  1. COLACE [Concomitant]
     Active Substance: DOCUSATE SODIUM
  2. NALOXONE [Concomitant]
     Active Substance: NALOXONE
  3. SUBOXONE [Suspect]
     Active Substance: BUPRENORPHINE HYDROCHLORIDE\NALOXONE HYDROCHLORIDE
     Indication: DRUG DEPENDENCE
     Dates: start: 20180801, end: 20180808
  4. BUPERNORPHONE [Concomitant]

REACTIONS (5)
  - Oral discomfort [None]
  - Drug intolerance [None]
  - Migraine [None]
  - Nausea [None]
  - Hypoaesthesia oral [None]

NARRATIVE: CASE EVENT DATE: 20180802
